FAERS Safety Report 6615597-0 (Version None)
Quarter: 2010Q1

REPORT INFORMATION
  Report Type: 
  Country: None (occurrence: None)
  Receive Date: 20100305
  Receipt Date: 20100225
  Transmission Date: 20100710
  Serious: Yes (Hospitalization)
  Sender: FDA-Public Use
  Company Number: US-ABBOTT-10P-163-0617841-00

PATIENT
  Sex: Female
  Weight: 64.922 kg

DRUGS (9)
  1. HUMIRA [Suspect]
     Indication: COLITIS ULCERATIVE
     Dates: end: 20100211
  2. COREG [Concomitant]
     Indication: CARDIAC FAILURE CONGESTIVE
  3. FUROSEMIDE [Concomitant]
     Indication: CARDIAC FAILURE CONGESTIVE
  4. POTASSIUM CHLORIDE [Concomitant]
     Indication: BLOOD POTASSIUM DECREASED
  5. NEXIUM [Concomitant]
     Indication: ULCER HAEMORRHAGE
  6. CALCIUM W/VITAMIN D NOS [Concomitant]
     Indication: DRUG USE FOR UNKNOWN INDICATION
  7. XANAX [Concomitant]
     Indication: ANXIETY
  8. LIALDA [Concomitant]
     Indication: COLITIS ULCERATIVE
     Dates: start: 20090101
  9. FLUIDS [Concomitant]
     Indication: HYPERTENSION
     Route: 042
     Dates: start: 20100106

REACTIONS (1)
  - COLITIS ULCERATIVE [None]
